FAERS Safety Report 8176579-3 (Version None)
Quarter: 2012Q1

REPORT INFORMATION
  Report Type: 
  Country: None (occurrence: None)
  Receive Date: 20120228
  Receipt Date: 20120213
  Transmission Date: 20120608
  Serious: Yes (Hospitalization)
  Sender: FDA-Public Use
  Company Number: JPI-P-019702

PATIENT
  Age: 45 Year
  Sex: Male

DRUGS (9)
  1. RANITIDINE HCL [Concomitant]
  2. FLUOXETINE HYDROCHLORIDE [Concomitant]
  3. TRAZODONE HCL [Concomitant]
  4. FENOFBIRATE (TRICOR) [Concomitant]
  5. XYREM [Suspect]
     Indication: CATAPLEXY
     Dosage: ORAL ; 9 GM (4.5 GM,2 IN 1 D),ORAL
     Route: 048
     Dates: start: 20061101
  6. LISINOPRIL [Concomitant]
  7. NORVASC [Concomitant]
  8. ACETAMINOPHEN W/HYDROCODONE (BITARTRATE (LORTAB) [Concomitant]
  9. VYTORIN [Concomitant]

REACTIONS (3)
  - STAPHYLOCOCCAL INFECTION [None]
  - ROAD TRAFFIC ACCIDENT [None]
  - SPINAL FRACTURE [None]
